FAERS Safety Report 25928778 (Version 1)
Quarter: 2025Q4

REPORT INFORMATION
  Report Type: Spontaneous
  Country: US (occurrence: US)
  Receive Date: 20251016
  Receipt Date: 20251016
  Transmission Date: 20260118
  Serious: No
  Sender: ORPHALAN
  Company Number: US-ORPHALAN-US-ORP-24-00176

PATIENT
  Sex: Male

DRUGS (2)
  1. CUVRIOR [Suspect]
     Active Substance: TRIENTINE TETRAHYDROCHLORIDE
     Indication: Hepato-lenticular degeneration
     Dosage: 600 MG (2 TABLETS) IN THE MORNING
     Route: 048
     Dates: start: 20240712
  2. CUVRIOR [Suspect]
     Active Substance: TRIENTINE TETRAHYDROCHLORIDE
     Dosage: 300 MG (1 TABLET) IN THE EVENING
     Route: 048
     Dates: start: 20240712

REACTIONS (1)
  - Product dose omission issue [Unknown]
